FAERS Safety Report 9415390 (Version 3)
Quarter: 2013Q3

REPORT INFORMATION
  Report Type: Spontaneous
  Country: US (occurrence: US)
  Receive Date: 20130723
  Receipt Date: 20130904
  Transmission Date: 20140515
  Serious: Yes (Hospitalization)
  Sender: FDA-Public Use
  Company Number: US-INCYTE CORPORATION-2013IN001566

PATIENT
  Age: 61 Year
  Sex: Female

DRUGS (22)
  1. JAKAFI [Suspect]
     Indication: MYELOFIBROSIS
     Dosage: 20 MG, QD
     Route: 048
     Dates: start: 20130531, end: 20130611
  2. JAKAFI [Suspect]
     Dosage: 20 MG, BID
     Route: 048
     Dates: start: 20130613, end: 20130723
  3. JAKAFI [Suspect]
     Dosage: 20 MG, QD
     Route: 048
  4. XYZALL [Concomitant]
     Dosage: UNK
  5. MORPHINE IR [Concomitant]
  6. FUROSEMIDE [Concomitant]
  7. NAPROXEN [Concomitant]
  8. CEPHALEXIN [Concomitant]
  9. GABAPENTIN [Concomitant]
  10. LORAZEPAM [Concomitant]
  11. PENTOXIFYLLINE ER [Concomitant]
  12. FERROUS SULFATE [Concomitant]
  13. TRAZODONE [Concomitant]
  14. TIZANIDINE [Concomitant]
  15. LEVOTHYROXINE [Concomitant]
  16. OXYCODONE W/PARACETAMOL [Concomitant]
     Dosage: 10-325
  17. FLONASE [Concomitant]
  18. HYOSCYAMINE [Concomitant]
  19. RANITIDINE [Concomitant]
  20. VITAMIN D3 [Concomitant]
  21. ASPIRIN [Concomitant]
  22. FLUOXETINE HCL [Concomitant]

REACTIONS (5)
  - Nausea [Unknown]
  - Skin ulcer [Unknown]
  - Anaemia [Unknown]
  - Pyrexia [Unknown]
  - Blood count abnormal [Unknown]
